FAERS Safety Report 6067115-6 (Version None)
Quarter: 2009Q1

REPORT INFORMATION
  Report Type: 
  Country: None (occurrence: None)
  Receive Date: 20090203
  Receipt Date: 20090120
  Transmission Date: 20090719
  Serious: Yes (Hospitalization)
  Sender: FDA-Public Use
  Company Number: 230713K09USA

PATIENT
  Age: 53 Year
  Sex: Female

DRUGS (6)
  1. REBIF [Suspect]
     Indication: MULTIPLE SCLEROSIS
     Dosage: 44 MCG, 3 IN 1 WEEKS, SUBCUTANEOUS
     Route: 058
     Dates: start: 20071218
  2. VICODIN [Concomitant]
  3. KLONOPIN [Concomitant]
  4. CITALOPRAM (CITALOPRAM /00582601/) [Concomitant]
  5. OMEPRAZOLE [Concomitant]
  6. CYMBALTA [Concomitant]

REACTIONS (5)
  - CHEST PAIN [None]
  - FALL [None]
  - FEELING ABNORMAL [None]
  - POLYMYALGIA RHEUMATICA [None]
  - TEMPOROMANDIBULAR JOINT SYNDROME [None]
